FAERS Safety Report 8606759 (Version 2)
Quarter: 2013Q2

REPORT INFORMATION
  Report Type: Spontaneous
  Country: US (occurrence: US)
  Receive Date: 20120611
  Receipt Date: 20130617
  Transmission Date: 20140414
  Serious: Yes (Disabling, Other)
  Sender: FDA-Public Use
  Company Number: US-ASTRAZENECA-2012SE34430

PATIENT
  Age: 40 Year
  Sex: Male
  Weight: 136.1 kg

DRUGS (11)
  1. NEXIUM [Suspect]
     Indication: GASTROOESOPHAGEAL REFLUX DISEASE
     Dosage: ONCE DAILY
     Route: 048
  2. NEXIUM [Suspect]
     Indication: GASTROOESOPHAGEAL REFLUX DISEASE
     Route: 048
     Dates: start: 20030110
  3. PREVACID [Concomitant]
  4. PROTONIX [Concomitant]
  5. ACIPHEX [Concomitant]
  6. PEPCID [Concomitant]
  7. LANTUS [Concomitant]
  8. ALEVE [Concomitant]
  9. LISINOPRIL [Concomitant]
  10. DARVOCET N [Concomitant]
  11. NEXIUM [Suspect]
     Indication: GASTROOESOPHAGEAL REFLUX DISEASE
     Route: 048

REACTIONS (10)
  - Patella fracture [Unknown]
  - Activities of daily living impaired [Unknown]
  - Osteoporosis [Unknown]
  - Osteoarthritis [Unknown]
  - Ankle fracture [Unknown]
  - Diabetes mellitus [Unknown]
  - Arthritis [Unknown]
  - Arthralgia [Unknown]
  - Arthralgia [Unknown]
  - Hip fracture [Unknown]
